FAERS Safety Report 12369653 (Version 1)
Quarter: 2016Q2

REPORT INFORMATION
  Report Type: Spontaneous
  Country: BE (occurrence: BE)
  Receive Date: 20160516
  Receipt Date: 20160516
  Transmission Date: 20160815
  Serious: Yes (Hospitalization, Other)
  Sender: FDA-Public Use
  Company Number: BE-GLENMARK PHARMACEUTICALS INC, USA.-2016GMK022856

PATIENT
  Age: 23 Year
  Sex: Male

DRUGS (5)
  1. TOPIRAMATE. [Suspect]
     Active Substance: TOPIRAMATE
     Indication: EPILEPSY
     Dosage: 400 MG, QD
  2. OXCARBAZEPINE. [Interacting]
     Active Substance: OXCARBAZEPINE
     Indication: EPILEPSY
     Dosage: 2400 MG, QD
  3. CLOBAZAM [Concomitant]
     Active Substance: CLOBAZAM
     Indication: EPILEPSY
     Dosage: 20 MG, QD
  4. PHENOBARBITAL. [Interacting]
     Active Substance: PHENOBARBITAL
     Indication: STATUS EPILEPTICUS
     Dosage: 800 MG, QD
     Route: 042
  5. PHENOBARBITAL. [Interacting]
     Active Substance: PHENOBARBITAL
     Dosage: 75 MG, QD

REACTIONS (5)
  - Coma scale abnormal [Recovering/Resolving]
  - Status epilepticus [Unknown]
  - Hyperammonaemic encephalopathy [Recovering/Resolving]
  - Treatment failure [Unknown]
  - Drug interaction [Unknown]
